FAERS Safety Report 15458924 (Version 1)
Quarter: 2018Q4

REPORT INFORMATION
  Report Type: Spontaneous
  Country: US (occurrence: US)
  Receive Date: 20181003
  Receipt Date: 20181003
  Transmission Date: 20190204
  Serious: Yes (Other)
  Sender: FDA-Public Use
  Company Number: US-SA-2017SA145260

PATIENT
  Age: 9 Year
  Sex: Male
  Weight: 27.9 kg

DRUGS (16)
  1. ALDURAZYME [Suspect]
     Active Substance: LARONIDASE
     Indication: MUCOPOLYSACCHARIDOSIS I
     Dosage: .58 MG/KG,QW
     Route: 041
     Dates: start: 201402
  2. OCEAN SALINE NASAL SPRAY [Concomitant]
     Active Substance: SODIUM CHLORIDE
     Dosage: 1 DF,PRN
     Route: 045
  3. IMODIUM A-D [Concomitant]
     Active Substance: LOPERAMIDE HYDROCHLORIDE
     Dosage: 2 MG,UNK
     Route: 065
  4. VITAMIN D2 [Concomitant]
     Active Substance: ERGOCALCIFEROL
     Dosage: UNK UNK,QD
     Route: 048
  5. MYCOSTATIN [Concomitant]
     Active Substance: NYSTATIN
     Dosage: UNK UNK,UNK
     Route: 065
  6. LIDOCAINE;PRILOCAINE [Concomitant]
     Dosage: UNK UNK,UNK
     Route: 065
  7. SEROQUEL [Concomitant]
     Active Substance: QUETIAPINE FUMARATE
     Dosage: 25 MG,UNK
     Route: 065
  8. GLICLAZIDE [Concomitant]
     Active Substance: GLICLAZIDE
     Dosage: UNK UNK,PRN
     Route: 065
  9. PRINIVIL [Concomitant]
     Active Substance: LISINOPRIL
     Dosage: 7.5 MG,UNK
     Route: 048
  10. ZESTRIL [Concomitant]
     Active Substance: LISINOPRIL
     Dosage: 7.5 MG,UNK
     Route: 048
  11. MIRALAX [Concomitant]
     Active Substance: POLYETHYLENE GLYCOL 3350
     Dosage: 17 G,PRN
     Route: 048
  12. PARACETAMOL [Concomitant]
     Active Substance: ACETAMINOPHEN
     Dosage: 325 MG,Q4H
     Route: 054
  13. LACTOBACILLUS ACIDOPHILUS [Concomitant]
     Active Substance: LACTOBACILLUS ACIDOPHILUS
     Dosage: UNK UNK,QD
     Route: 048
  14. ALDURAZYME [Suspect]
     Active Substance: LARONIDASE
     Dosage: 15 MG,QW
     Route: 041
     Dates: start: 20150617
  15. GAS RELIEF [Concomitant]
     Active Substance: DIMETHICONE
     Dosage: UNK UNK,UNK
     Route: 065
  16. MELATONIN [Concomitant]
     Active Substance: MELATONIN
     Dosage: 1 MG,UNK
     Route: 048

REACTIONS (6)
  - Insomnia [Unknown]
  - Rash [Recovered/Resolved]
  - Skin disorder [Unknown]
  - Constipation [Unknown]
  - Rash [Recovered/Resolved]
  - Dermatillomania [Unknown]

NARRATIVE: CASE EVENT DATE: 20170725
